FAERS Safety Report 7889378-4 (Version None)
Quarter: 2011Q4

REPORT INFORMATION
  Report Type: 
  Country: None (occurrence: None)
  Receive Date: 20111103
  Receipt Date: 20111027
  Transmission Date: 20120403
  Serious: Yes (Other)
  Sender: FDA-Public Use
  Company Number: JP-JNJFOC-20111012825

PATIENT

DRUGS (3)
  1. CYCLOSPORINE [Concomitant]
     Route: 065
  2. ITRACONAZOLE [Suspect]
     Indication: PRODUCT USED FOR UNKNOWN INDICATION
     Route: 048
  3. THYMOGLOBULIN [Concomitant]
     Route: 065

REACTIONS (1)
  - CHOLESTASIS [None]
